FAERS Safety Report 7070013-2 (Version None)
Quarter: 2010Q4

REPORT INFORMATION
  Report Type: 
  Country: None (occurrence: None)
  Receive Date: 20101028
  Receipt Date: 20100816
  Transmission Date: 20110411
  Serious: No
  Sender: FDA-Public Use
  Company Number: US-WYE-H17036810

PATIENT
  Age: 55 Year
  Sex: Male
  Weight: 89.89 kg

DRUGS (1)
  1. ADVIL [Suspect]
     Indication: EYE INJURY
     Route: 048
     Dates: start: 20100812, end: 20100812

REACTIONS (2)
  - ABDOMINAL DISCOMFORT [None]
  - FAECES DISCOLOURED [None]
